FAERS Safety Report 12713788 (Version 4)
Quarter: 2017Q1

REPORT INFORMATION
  Report Type: Spontaneous
  Country: US (occurrence: US)
  Receive Date: 20160904
  Receipt Date: 20170303
  Transmission Date: 20170428
  Serious: Yes (Hospitalization, Other)
  Sender: FDA-Public Use
  Company Number: US-ELI_LILLY_AND_COMPANY-US201608012519

PATIENT
  Age: 63 Year
  Sex: Female

DRUGS (3)
  1. HUMALOG [Suspect]
     Active Substance: INSULIN LISPRO
     Dosage: 15 U, TID
     Route: 065
     Dates: start: 2006
  2. LANTUS [Concomitant]
     Active Substance: INSULIN GLARGINE
  3. HUMALOG [Suspect]
     Active Substance: INSULIN LISPRO
     Indication: TYPE 2 DIABETES MELLITUS
     Dosage: 15 U, TID
     Route: 065
     Dates: start: 2006

REACTIONS (5)
  - Blood pressure increased [Not Recovered/Not Resolved]
  - Diabetic ketoacidosis [Unknown]
  - Blood glucose increased [Not Recovered/Not Resolved]
  - Anxiety [Not Recovered/Not Resolved]
  - Drug dose omission [Not Recovered/Not Resolved]

NARRATIVE: CASE EVENT DATE: 201608
